FAERS Safety Report 9234020 (Version 1)
Quarter: 2013Q1

REPORT INFORMATION
  Report Type: Spontaneous
  Country: US (occurrence: None)
  Receive Date: 20121031
  Receipt Date: 20121031
  Transmission Date: 20140127
  Serious: No
  Sender: FDA-Public Use
  Company Number: PHEH2012US015323

PATIENT
  Age: 31 Year
  Sex: Female
  Weight: 55.79 kg

DRUGS (10)
  1. GILENYA (FTY) CAPSULE, 0.5MG [Suspect]
     Indication: MULTIPLE SCLEROSIS
     Route: 048
     Dates: start: 20120716
  2. ZOFRAN (ONDANSETRON HYDROCHLORIDE) TABLET [Concomitant]
  3. CLONZAEPAM (CLONAZEPAM) TABLET [Concomitant]
  4. LEXAPRO (ESCITALOPRAM OXALATE) TABLET, 20MG [Concomitant]
  5. SKELAXIN (METALOXONE) TABLET 800MG [Concomitant]
  6. ADVIL (MEFENAMIC ACID) CAPSULE, 200MG [Concomitant]
  7. BACLOFEN (BACLOFEN) TABLET, 10MG [Concomitant]
  8. LYRICA (PREGABALIN0 CAPSULE, 100MG [Concomitant]
  9. PROVIGIL (MODAFINIL) TABLET, 200MG [Concomitant]
  10. PREMARIN (ESTROGENS CONJUGATED) TABLET 0.9MG [Concomitant]

REACTIONS (3)
  - Nausea [None]
  - Fatigue [None]
  - Headache [None]
